FAERS Safety Report 4778878-1 (Version None)
Quarter: 2005Q3

REPORT INFORMATION
  Report Type: 
  Country: None (occurrence: None)
  Receive Date: 20050922
  Receipt Date: 20050914
  Transmission Date: 20060218
  Serious: Yes (Hospitalization)
  Sender: FDA-Public Use
  Company Number: 233950K05USA

PATIENT
  Age: 50 Year
  Sex: Female
  Weight: 77.1115 kg

DRUGS (1)
  1. REBIF [Suspect]
     Indication: MULTIPLE SCLEROSIS
     Dosage: 44 MCG, 3 IN 1 WEEKS, SUBCUTANEOUS
     Route: 058
     Dates: start: 20050623

REACTIONS (11)
  - ANKLE FRACTURE [None]
  - BLOOD ELECTROLYTES ABNORMAL [None]
  - BLOOD POTASSIUM ABNORMAL [None]
  - DIARRHOEA [None]
  - FALL [None]
  - MALNUTRITION [None]
  - NAUSEA [None]
  - OEDEMA [None]
  - PAIN [None]
  - VOMITING [None]
  - WEIGHT DECREASED [None]
